FAERS Safety Report 20512636 (Version 3)
Quarter: 2022Q2

REPORT INFORMATION
  Report Type: Report from Study
  Country: US (occurrence: None)
  Receive Date: 20220224
  Receipt Date: 20220404
  Transmission Date: 20220721
  Serious: Yes (Hospitalization)
  Sender: FDA-Public Use
  Company Number: US-Eisai Medical Research-EC-2022-108186

PATIENT
  Age: 83 Year
  Sex: Female

DRUGS (3)
  1. LENVIMA [Suspect]
     Active Substance: LENVATINIB
     Indication: Endometrial cancer
     Dosage: FREQUENCY: DAILY FOR 1-21 DAYS AND 7 DAYS OFF
     Route: 048
     Dates: start: 20220201, end: 202202
  2. LENVIMA [Suspect]
     Active Substance: LENVATINIB
     Indication: Renal cancer
  3. KEYTRUDA [Concomitant]
     Active Substance: PEMBROLIZUMAB

REACTIONS (3)
  - Liver function test abnormal [Unknown]
  - Blood pressure increased [Unknown]
  - General physical health deterioration [Unknown]

NARRATIVE: CASE EVENT DATE: 20220204
